FAERS Safety Report 7356246-6 (Version None)
Quarter: 2011Q1

REPORT INFORMATION
  Report Type: 
  Country: None (occurrence: None)
  Receive Date: 20110316
  Receipt Date: 20110310
  Transmission Date: 20110831
  Serious: Yes (Death, Hospitalization, Other)
  Sender: FDA-Public Use
  Company Number: CA-ELI_LILLY_AND_COMPANY-CA201103003245

PATIENT
  Sex: Female

DRUGS (10)
  1. SIMVASTATIN [Concomitant]
  2. PROCHLORPERAZIN [Concomitant]
  3. ZYPREXA [Suspect]
     Indication: SCHIZOPHRENIA
     Dosage: 10 MG, DAILY (1/D)
     Dates: start: 20040207
  4. ZYPREXA [Suspect]
     Dosage: 15 MG, EACH EVENING
     Dates: start: 20100123
  5. BENZTROPINE MESYLATE [Concomitant]
     Dosage: 2 MG, DAILY (1/D)
  6. QUINAPRIL [Concomitant]
  7. ZYPREXA ZYDIS [Suspect]
     Indication: SCHIZOPHRENIA
     Dosage: 20 MG, EACH EVENING
     Dates: start: 20041210
  8. FLUOXETINE HYDROCHLORIDE [Concomitant]
     Dosage: 20 MG, DAILY (1/D)
  9. INDAPAMIDE [Concomitant]
  10. HALOPERIDOL [Concomitant]
     Dosage: 100 MG, MONTHLY (1/M)
     Route: 030

REACTIONS (14)
  - DIABETIC KETOACIDOSIS [None]
  - HYPERGLYCAEMIA [None]
  - SUDDEN CARDIAC DEATH [None]
  - CATARACT [None]
  - PULMONARY EMBOLISM [None]
  - LOSS OF CONSCIOUSNESS [None]
  - ASPARTATE AMINOTRANSFERASE INCREASED [None]
  - CEREBROVASCULAR ACCIDENT [None]
  - DIABETES MELLITUS [None]
  - ARTERIOSCLEROSIS [None]
  - HYPERTENSION [None]
  - GAMMA-GLUTAMYLTRANSFERASE INCREASED [None]
  - RENAL FAILURE [None]
  - BLINDNESS [None]
